FAERS Safety Report 21604383 (Version 1)
Quarter: 2022Q4

REPORT INFORMATION
  Report Type: Spontaneous
  Country: ES (occurrence: ES)
  Receive Date: 20221116
  Receipt Date: 20221116
  Transmission Date: 20230113
  Serious: Yes (Other)
  Sender: FDA-Public Use
  Company Number: None

PATIENT
  Age: 72 Year
  Sex: Male

DRUGS (3)
  1. FUROSEMIDE [Suspect]
     Active Substance: FUROSEMIDE
     Indication: Renal colic
     Dosage: 20.0 MG WITH 8 HOURS
     Route: 042
     Dates: start: 20211229, end: 20220101
  2. ALLOPURINOL [Concomitant]
     Active Substance: ALLOPURINOL
     Indication: Gout
     Dosage: 100.0 MG DE? 100 MG EFG TABLETS, 100 TABLETS
     Route: 048
     Dates: start: 20161206
  3. ATORVASTATIN NORMON 10 mg [Concomitant]
     Indication: Type V hyperlipidaemia
     Dosage: 10.0 MG CE?FILM-COATED TABLETS EFG, 28 TABLETS
     Route: 048
     Dates: start: 20180213

REACTIONS (1)
  - Acute kidney injury [Recovered/Resolved]

NARRATIVE: CASE EVENT DATE: 20220101
